FAERS Safety Report 7379597-8 (Version None)
Quarter: 2011Q1

REPORT INFORMATION
  Report Type: 
  Country: None (occurrence: None)
  Receive Date: 20110318
  Receipt Date: 20110303
  Transmission Date: 20110831
  Serious: Yes (Other)
  Sender: FDA-Public Use
  Company Number: 2011S1000270

PATIENT
  Age: 57 Year
  Sex: Male
  Weight: 87 kg

DRUGS (5)
  1. NEBIVOLOL [Concomitant]
  2. ACAMPROSATE [Concomitant]
  3. LIVALO [Suspect]
     Dosage: 2 MG, PO
     Route: 048
     Dates: start: 20101210, end: 20110301
  4. LEVITRA [Concomitant]
  5. CALCIUM [Concomitant]

REACTIONS (1)
  - RHABDOMYOLYSIS [None]
